FAERS Safety Report 5786995-2 (Version None)
Quarter: 2008Q2

REPORT INFORMATION
  Report Type: 
  Country: None (occurrence: None)
  Receive Date: 20080618
  Receipt Date: 20070717
  Transmission Date: 20081010
  Serious: Yes (Other)
  Sender: FDA-Public Use
  Company Number: 200710339US

PATIENT
  Age: 70 Year
  Sex: Male
  Weight: 93.17 kg

DRUGS (10)
  1. LANTUS [Suspect]
     Indication: TYPE 2 DIABETES MELLITUS
     Dosage: 24 U
     Dates: start: 20070113
  2. LANTUS [Suspect]
     Indication: TYPE 2 DIABETES MELLITUS
     Dosage: 30 U QD
  3. GLYBURIDE [Concomitant]
  4. PRECOSE [Concomitant]
  5. PIOGLITAZONE [Concomitant]
  6. VALSARTAN [Concomitant]
  7. OPTICLIK [Suspect]
  8. ZOCOR [Concomitant]
  9. AVELOX [Concomitant]
  10. TUSSIN [Concomitant]

REACTIONS (2)
  - BLOOD GLUCOSE DECREASED [None]
  - HYPERGLYCAEMIA [None]
